FAERS Safety Report 9214972 (Version 1)
Quarter: 2013Q2

REPORT INFORMATION
  Report Type: Report from Study
  Country: FR (occurrence: FR)
  Receive Date: 20130405
  Receipt Date: 20130405
  Transmission Date: 20140414
  Serious: Yes (Hospitalization)
  Sender: FDA-Public Use
  Company Number: FR-PFIZER INC-2013104992

PATIENT
  Age: 80 Year
  Sex: Male
  Weight: 87 kg

DRUGS (6)
  1. TORISEL [Suspect]
     Dosage: 175 MG, WEEKLY
     Dates: start: 20101223, end: 20101231
  2. TORISEL [Suspect]
     Dosage: 75 MG, WEEKLY
     Dates: start: 20110114, end: 20110121
  3. TORISEL [Suspect]
     Dosage: 75 MG, WEEKLY
     Dates: start: 20110207, end: 20110214
  4. TORISEL [Suspect]
     Dosage: 75 MG, WEEKLY
     Dates: start: 20110228, end: 20110307
  5. TORISEL [Suspect]
     Dosage: 75 MG, WEEKLY
     Dates: start: 20110328, end: 20110328
  6. TORISEL [Suspect]
     Dosage: 75 MG, WEEKLY
     Dates: start: 20110426, end: 20110502

REACTIONS (7)
  - Bronchopneumopathy [Not Recovered/Not Resolved]
  - Pulmonary fibrosis [Not Recovered/Not Resolved]
  - Musculoskeletal pain [Recovered/Resolved]
  - Dyslipidaemia [Unknown]
  - Pancytopenia [Unknown]
  - Neutropenia [Unknown]
  - Thrombocytopenia [Unknown]
